FAERS Safety Report 8345950-9 (Version None)
Quarter: 2012Q2

REPORT INFORMATION
  Report Type: 
  Country: None (occurrence: None)
  Receive Date: 20120507
  Receipt Date: 20120425
  Transmission Date: 20120825
  Serious: Yes (Hospitalization, Other)
  Sender: FDA-Public Use
  Company Number: 2012SP021974

PATIENT
  Age: 54 Year
  Sex: Female

DRUGS (14)
  1. AMLODIPINE BESYLATE [Concomitant]
  2. ENALAPRIL MALEATE [Concomitant]
  3. HICEE [Concomitant]
  4. PROMACTA [Concomitant]
  5. TALION [Concomitant]
  6. XYZAL [Concomitant]
  7. FERRUM [Concomitant]
  8. PEGINTERFERON ALFA-2B [Suspect]
     Indication: HEPATITIS C
     Dosage: 80 MCG;QW;SC
     Route: 058
     Dates: start: 20120224, end: 20120405
  9. ZOLPIDEM [Concomitant]
  10. REBETOL [Suspect]
     Indication: HEPATITIS C
     Dosage: 200 MG;QD;PO 400 MG;QD;PO
     Route: 048
     Dates: start: 20120323, end: 20120405
  11. REBETOL [Suspect]
     Indication: HEPATITIS C
     Dosage: 200 MG;QD;PO 400 MG;QD;PO
     Route: 048
     Dates: start: 20120224, end: 20120322
  12. HIRUSUKAMIN [Concomitant]
  13. SHAKUYAKU-KANZO-TO [Concomitant]
  14. TELAVIC (ANTIVIRALS NOS) (1500 MG) [Suspect]
     Indication: HEPATITIS C
     Dosage: 1500 MG;QD;PO
     Route: 048
     Dates: start: 20120224, end: 20120405

REACTIONS (6)
  - PERITONITIS [None]
  - MUSCLE SPASMS [None]
  - GASTROENTERITIS [None]
  - HAEMOGLOBIN DECREASED [None]
  - DRUG ERUPTION [None]
  - GASTRIC ULCER [None]
